FAERS Safety Report 19208970 (Version 2)
Quarter: 2021Q3

REPORT INFORMATION
  Report Type: Report from Study
  Country: US (occurrence: US)
  Receive Date: 20210503
  Receipt Date: 20210723
  Transmission Date: 20211014
  Serious: No
  Sender: FDA-Public Use
  Company Number: NVSC2021US099256

PATIENT
  Sex: Male

DRUGS (2)
  1. ILARIS [Suspect]
     Active Substance: CANAKINUMAB
     Indication: STILL^S DISEASE
     Dosage: 130 MG ONCE EVERY 28 DAYS
     Route: 058
     Dates: start: 20200901
  2. ILARIS [Suspect]
     Active Substance: CANAKINUMAB
     Dosage: 130 MG Q2W
     Route: 058

REACTIONS (1)
  - Condition aggravated [Unknown]
